FAERS Safety Report 7460494-4 (Version None)
Quarter: 2011Q2

REPORT INFORMATION
  Report Type: 
  Country: None (occurrence: None)
  Receive Date: 20110505
  Receipt Date: 20110502
  Transmission Date: 20111010
  Serious: Yes (Hospitalization, Disabling, Other)
  Sender: FDA-Public Use
  Company Number: US-PFIZER INC-2010181764

PATIENT
  Sex: Female

DRUGS (2)
  1. CHANTIX [Suspect]
     Indication: SMOKING CESSATION THERAPY
     Dosage: UNK
     Dates: start: 20070901, end: 20071001
  2. AMBIEN [Concomitant]
     Dosage: UNK
     Dates: start: 20030101

REACTIONS (9)
  - MENTAL DISORDER [None]
  - AGGRESSION [None]
  - PERSONALITY DISORDER [None]
  - PSYCHOTIC DISORDER [None]
  - ANXIETY [None]
  - BIPOLAR DISORDER [None]
  - DEPRESSION [None]
  - ATTENTION DEFICIT/HYPERACTIVITY DISORDER [None]
  - SUICIDE ATTEMPT [None]
